FAERS Safety Report 10537001 (Version 3)
Quarter: 2014Q4

REPORT INFORMATION
  Report Type: Report from Study
  Country: DE (occurrence: DE)
  Receive Date: 20141022
  Receipt Date: 20141113
  Transmission Date: 20150529
  Serious: Yes (Hospitalization, Other)
  Sender: FDA-Public Use
  Company Number: DE-ONYX-2014-0729

PATIENT
  Age: 76 Year
  Sex: Male

DRUGS (19)
  1. BRONCHO NOVO SPRAY [Concomitant]
     Indication: DYSPNOEA
     Route: 048
  2. MIDRO TEE [Concomitant]
     Indication: LAXATIVE SUPPORTIVE CARE
     Route: 050
  3. COTRIM D.S. [Concomitant]
     Active Substance: SULFAMETHOXAZOLE\TRIMETHOPRIM
     Indication: PROPHYLAXIS
     Route: 048
     Dates: start: 20131106, end: 201403
  4. PANTOZOL [Concomitant]
     Active Substance: PANTOPRAZOLE SODIUM
     Indication: PROPHYLAXIS
     Route: 048
     Dates: start: 20131107
  5. BISOPROLOL [Concomitant]
     Active Substance: BISOPROLOL
     Indication: ARRHYTHMIA
     Route: 048
     Dates: start: 20140211, end: 20140319
  6. CARFILZOMIB [Suspect]
     Active Substance: CARFILZOMIB
     Indication: PLASMA CELL MYELOMA
     Route: 042
     Dates: start: 20131105, end: 20131106
  7. BONDRONAT [Concomitant]
     Active Substance: IBANDRONIC ACID
     Indication: PROPHYLAXIS
     Route: 042
  8. LASIX [Concomitant]
     Active Substance: FUROSEMIDE
     Indication: CARDIAC FAILURE
     Route: 048
     Dates: start: 20140129, end: 20140320
  9. DEXAMETHASONE. [Suspect]
     Active Substance: DEXAMETHASONE
     Indication: PLASMA CELL MYELOMA
     Route: 048
     Dates: start: 20131105, end: 20140305
  10. NOVAMINSULFON [Concomitant]
     Active Substance: METAMIZOLE
     Indication: BACK PAIN
     Route: 048
     Dates: end: 20140320
  11. CARFILZOMIB [Suspect]
     Active Substance: CARFILZOMIB
     Route: 042
     Dates: start: 20131112, end: 20131120
  12. MAGNESIUM [Concomitant]
     Active Substance: MAGNESIUM
     Indication: MUSCLE SPASMS
     Route: 048
     Dates: start: 20140102, end: 20140320
  13. CARFILZOMIB [Suspect]
     Active Substance: CARFILZOMIB
     Route: 042
     Dates: start: 20140225, end: 20140305
  14. CANDESARTAN [Concomitant]
     Active Substance: CANDESARTAN
     Indication: HYPERTENSION
     Route: 048
     Dates: end: 20140320
  15. TORASEMID [Concomitant]
     Active Substance: TORSEMIDE
     Indication: RENAL FAILURE
     Route: 048
     Dates: start: 20131112, end: 20140520
  16. PARACETAMOL [Concomitant]
     Active Substance: ACETAMINOPHEN
     Indication: PAIN
     Route: 048
  17. CARFILZOMIB [Suspect]
     Active Substance: CARFILZOMIB
     Route: 042
     Dates: start: 20131204, end: 20131218
  18. CARFILZOMIB [Suspect]
     Active Substance: CARFILZOMIB
     Route: 042
     Dates: start: 20140102, end: 20140128
  19. ADENURIC [Concomitant]
     Active Substance: FEBUXOSTAT
     Indication: CARDIAC FAILURE
     Route: 048
     Dates: start: 20140129

REACTIONS (1)
  - Cardiomyopathy [Not Recovered/Not Resolved]

NARRATIVE: CASE EVENT DATE: 20140320
